FAERS Safety Report 6232888-6 (Version None)
Quarter: 2009Q2

REPORT INFORMATION
  Report Type: 
  Country: None (occurrence: None)
  Receive Date: 20090617
  Receipt Date: 20090609
  Transmission Date: 20091009
  Serious: Yes (Other)
  Sender: FDA-Public Use
  Company Number: GB-AVENTIS-200916009GDDC

PATIENT
  Sex: Female

DRUGS (2)
  1. ARAVA [Suspect]
     Indication: RHEUMATOID ARTHRITIS
     Dosage: DOSE: UNK
  2. ARCOXIA [Concomitant]
     Dosage: DOSE: UNK

REACTIONS (2)
  - CONFUSIONAL STATE [None]
  - MENINGITIS ASEPTIC [None]
